FAERS Safety Report 5892795-5 (Version None)
Quarter: 2008Q3

REPORT INFORMATION
  Report Type: 
  Country: None (occurrence: None)
  Receive Date: 20080923
  Receipt Date: 20080909
  Transmission Date: 20090109
  Serious: Yes (Other)
  Sender: FDA-Public Use
  Company Number: GB-AMGEN-US308783

PATIENT
  Sex: Female
  Weight: 50 kg

DRUGS (4)
  1. ENBREL [Suspect]
     Indication: RHEUMATOID ARTHRITIS
     Route: 058
     Dates: start: 20010101, end: 20010723
  2. MELOXICAM [Concomitant]
     Indication: RHEUMATOID ARTHRITIS
     Dosage: 15 MG MANE
     Route: 048
     Dates: start: 19991101
  3. CORTICOSTEROIDS [Concomitant]
     Indication: RHEUMATOID ARTHRITIS
     Dosage: UNKNOWN
     Route: 065
  4. KAPAKE [Concomitant]
     Indication: RHEUMATOID ARTHRITIS
     Dosage: 2 TABLETS EVERY 4 HOURS AS NEEDED
     Route: 048
     Dates: start: 19991101

REACTIONS (8)
  - ANTINUCLEAR ANTIBODY POSITIVE [None]
  - CONDITION AGGRAVATED [None]
  - LETHARGY [None]
  - LEUKOPENIA [None]
  - LUPUS-LIKE SYNDROME [None]
  - PHOTOSENSITIVITY REACTION [None]
  - RAYNAUD'S PHENOMENON [None]
  - SYNOVITIS [None]
